FAERS Safety Report 7100690-9 (Version None)
Quarter: 2010Q4

REPORT INFORMATION
  Report Type: 
  Country: None (occurrence: None)
  Receive Date: 20101113
  Receipt Date: 20100326
  Transmission Date: 20110411
  Serious: No
  Sender: FDA-Public Use
  Company Number: US-ALLERGAN-1002692US

PATIENT
  Age: 67 Year
  Sex: Female
  Weight: 54.422 kg

DRUGS (9)
  1. BOTOX COSMETIC [Suspect]
     Indication: SKIN WRINKLING
     Dosage: 35 UNITS, SINGLE
     Dates: start: 20091027, end: 20091027
  2. WELLBUTRIN [Concomitant]
     Indication: DEPRESSION
  3. ZETIA [Concomitant]
     Indication: BLOOD CHOLESTEROL INCREASED
  4. CRESTOR [Concomitant]
     Indication: BLOOD CHOLESTEROL INCREASED
  5. ESTRADIOL [Concomitant]
  6. ASPIRIN [Concomitant]
  7. TRAZEDONE [Concomitant]
  8. NIASPAN [Concomitant]
  9. CELEKA [Concomitant]

REACTIONS (1)
  - DYSARTHRIA [None]
